FAERS Safety Report 9607584 (Version 1)
Quarter: 2013Q4

REPORT INFORMATION
  Report Type: Spontaneous
  Country: US (occurrence: None)
  Receive Date: 20131007
  Receipt Date: 20131007
  Transmission Date: 20140711
  Serious: Yes (Death)
  Sender: FDA-Public Use
  Company Number: 2013AP008504

PATIENT
  Age: 44 Year
  Sex: Female

DRUGS (8)
  1. TRAMADOL HYDROCHLORIDE TABLETS [Suspect]
     Route: 048
  2. LISINOPRIL TABLETS [Suspect]
     Route: 048
  3. GABAPENTIN [Suspect]
     Route: 048
  4. QUETIAPINE FUMARATE [Suspect]
     Route: 048
  5. DULOXETINE [Suspect]
     Route: 048
  6. METAXALONE [Suspect]
     Route: 048
  7. CYCLOBENZAPRINE [Suspect]
     Route: 048
  8. ESZOPICLONE [Suspect]
     Route: 048

REACTIONS (1)
  - Completed suicide [None]
